FAERS Safety Report 20066386 (Version 1)
Quarter: 2021Q4

REPORT INFORMATION
  Report Type: Spontaneous
  Country: SE (occurrence: SE)
  Receive Date: 20211115
  Receipt Date: 20211115
  Transmission Date: 20220303
  Serious: Yes (Hospitalization, Other)
  Sender: FDA-Public Use
  Company Number: SE-MPA-2021-091229

PATIENT
  Age: 79 Year
  Sex: Female

DRUGS (1)
  1. ALENDRONATE SODIUM [Suspect]
     Active Substance: ALENDRONATE SODIUM
     Indication: Product used for unknown indication
     Dosage: 70 MILLIGRAM, EVERY WEEK
     Route: 048

REACTIONS (1)
  - Atypical femur fracture [Not Recovered/Not Resolved]

NARRATIVE: CASE EVENT DATE: 20211024
